FAERS Safety Report 14578258 (Version 1)
Quarter: 2018Q1

REPORT INFORMATION
  Report Type: Spontaneous
  Country: BR (occurrence: BR)
  Receive Date: 20180227
  Receipt Date: 20180227
  Transmission Date: 20180509
  Serious: Yes (Life-Threatening, Hospitalization, Other)
  Sender: FDA-Public Use
  Company Number: BR-DSJP-DSE-2018-107455

PATIENT

DRUGS (2)
  1. GINERA [Concomitant]
     Active Substance: ETHINYL ESTRADIOL\GESTODENE
     Indication: ORAL CONTRACEPTION
     Dosage: UNK
     Route: 048
     Dates: end: 2011
  2. BENICAR [Suspect]
     Active Substance: OLMESARTAN MEDOXOMIL
     Indication: HYPERTENSION
     Dosage: 20 MG, QD
     Route: 048
     Dates: end: 2011

REACTIONS (13)
  - Hepatic cancer [Recovered/Resolved]
  - Ovarian cancer [Recovered/Resolved]
  - Uterine cancer [Recovered/Resolved]
  - Low density lipoprotein increased [Not Recovered/Not Resolved]
  - Malignant peritoneal neoplasm [Recovered/Resolved]
  - Malignant splenic neoplasm [Recovered/Resolved]
  - Gastrointestinal carcinoma [Recovered/Resolved]
  - Appendix cancer [Recovered/Resolved]
  - Gallbladder cancer [Recovered/Resolved]
  - Coma [Recovered/Resolved]
  - Endometriosis [Recovered/Resolved]
  - Gastric cancer [Recovered/Resolved]
  - Bladder cancer [Recovered/Resolved]

NARRATIVE: CASE EVENT DATE: 2011
